FAERS Safety Report 8906866 (Version 1)
Quarter: 2012Q4

REPORT INFORMATION
  Report Type: 
  Country: US (occurrence: US)
  Receive Date: 20121114
  Receipt Date: 20121114
  Transmission Date: 20130627
  Serious: Yes (Hospitalization)
  Sender: FDA-Public Use
  Company Number: US-ELI_LILLY_AND_COMPANY-US201210007028

PATIENT
  Age: 51 Year
  Sex: Female

DRUGS (19)
  1. FORTEO [Suspect]
     Indication: OSTEOPOROSIS
     Dosage: 20 ug, qd
     Route: 065
     Dates: start: 201209
  2. FORTEO [Suspect]
     Dosage: 20 ug, qd
  3. FENOFIBRATE [Concomitant]
     Dosage: 120 mg, qd
  4. METFORMIN [Concomitant]
     Dosage: 500 mg, qd
  5. RANITIDINE [Concomitant]
     Dosage: 300 mg, QHS
  6. OMEPRAZOLE [Concomitant]
     Dosage: 40 mg, bid
  7. MELOXICAM [Concomitant]
     Indication: PAIN
     Dosage: 7.5 mg, bid
  8. LYRICA [Concomitant]
     Dosage: 100 mg, tid
  9. ROPINIROLE [Concomitant]
     Dosage: 0.5mg AM, 0.5mg PM, 2mg HS
  10. LISINOPRIL/HCTZ [Concomitant]
     Indication: HYPERTENSION
     Dosage: 10/12.5mg qd
  11. SPIRIVA [Concomitant]
     Dosage: 18 ug, qd
  12. ADVAIR [Concomitant]
     Dosage: 50/250, 1 puff bid
  13. COMBIVENT [Concomitant]
     Dosage: 14.7, 2 puffs. prn
  14. LUMIGAN [Concomitant]
     Dosage: 0.01 %, 1 drop OU, HS
  15. FERROUS SULPHATE [Concomitant]
     Indication: ANAEMIA
     Dosage: 325 mg, qd
  16. VITAMIN C [Concomitant]
     Dosage: 1000 mg, qd
  17. FISH OIL [Concomitant]
     Dosage: 2000 mg, qd
  18. MAGNESIUM [Concomitant]
     Dosage: 800 mg, qd
  19. VITAMIN D3 [Concomitant]
     Dosage: 2000 IU, qd

REACTIONS (7)
  - Knee operation [Recovering/Resolving]
  - Injection site haemorrhage [Unknown]
  - Injection site pain [Unknown]
  - Vaginal haemorrhage [Unknown]
  - Cataract [Unknown]
  - Gait disturbance [Unknown]
  - Arthralgia [Unknown]
